FAERS Safety Report 5643202-9 (Version None)
Quarter: 2008Q1

REPORT INFORMATION
  Report Type: 
  Country: None (occurrence: None)
  Receive Date: 20080228
  Receipt Date: 20080221
  Transmission Date: 20080703
  Serious: No
  Sender: FDA-Public Use
  Company Number: US-BAXTER-2008BH001592

PATIENT
  Sex: Female

DRUGS (1)
  1. HEPARIN SODIUM [Suspect]
     Indication: PHOTON RADIATION THERAPY
     Route: 042
     Dates: start: 20080201, end: 20080201

REACTIONS (2)
  - FLUSHING [None]
  - MALAISE [None]
